FAERS Safety Report 4413566-2 (Version None)
Quarter: 2004Q2

REPORT INFORMATION
  Report Type: 
  Country: None (occurrence: None)
  Receive Date: 20040630
  Receipt Date: 20040309
  Transmission Date: 20050107
  Serious: No
  Sender: FDA-Public Use
  Company Number: 04P-163-0252960-00

PATIENT
  Age: 65 Year
  Sex: Female
  Weight: 78.4723 kg

DRUGS (8)
  1. HUMIRA [Suspect]
     Indication: RHEUMATOID ARTHRITIS
     Dosage: 40 MG, 1 IN 2 WK, SUBCUTANEOUS
     Route: 058
     Dates: start: 20031119, end: 20040309
  2. PREDNISONE TAB [Concomitant]
  3. QUINAPRIL HYDROCHLORIDE [Concomitant]
  4. ASPIRIN [Concomitant]
  5. MULTI-VITAMINS [Concomitant]
  6. TOCOPHEROL CONCENTRATE CAP [Concomitant]
  7. ASCORBIC ACID [Concomitant]
  8. VITAMIN B COMPLEX CAP [Concomitant]

REACTIONS (2)
  - SINUSITIS [None]
  - SWELLING FACE [None]
